FAERS Safety Report 8959144 (Version 1)
Quarter: 2012Q4

REPORT INFORMATION
  Report Type: 
  Country: US (occurrence: US)
  Receive Date: 20121212
  Receipt Date: 20121212
  Transmission Date: 20130627
  Serious: No
  Sender: FDA-Public Use
  Company Number: US-MYLANLABS-2012S1009961

PATIENT
  Age: 44 Year
  Sex: Male

DRUGS (5)
  1. PERPHENAZINE AND AMITRIPTYLINE HYDROCHLORIDE [Suspect]
     Indication: DEPRESSION
     Route: 048
     Dates: start: 1997
  2. PERPHENAZINE AND AMITRIPTYLINE HYDROCHLORIDE [Suspect]
     Indication: MOOD SWINGS
     Route: 048
     Dates: start: 1997
  3. PERPHENAZINE AND AMITRIPTYLINE HYDROCHLORIDE [Suspect]
     Indication: ANXIETY
     Route: 048
     Dates: start: 1997
  4. PERPHENAZINE AND AMITRIPTYLINE HYDROCHLORIDE [Suspect]
     Indication: SCHIZOPHRENIA
     Route: 048
     Dates: start: 1997
  5. ELAVIL /00002202/ [Concomitant]
     Indication: INSOMNIA

REACTIONS (3)
  - Weight increased [Not Recovered/Not Resolved]
  - Restlessness [Not Recovered/Not Resolved]
  - Increased appetite [Not Recovered/Not Resolved]
